FAERS Safety Report 12252578 (Version 1)
Quarter: 2016Q2

REPORT INFORMATION
  Report Type: Spontaneous
  Country: SE (occurrence: SE)
  Receive Date: 20160411
  Receipt Date: 20160411
  Transmission Date: 20160815
  Serious: Yes (Other)
  Sender: FDA-Public Use
  Company Number: SE-009507513-1604SWE006461

PATIENT
  Age: 67 Year
  Sex: Male

DRUGS (2)
  1. MINERAL OIL (+) PETROLATUM, WHITE [Suspect]
     Active Substance: MINERAL OIL\PETROLATUM
     Indication: PRODUCT USED FOR UNKNOWN INDICATION
     Dosage: 1 %, UNK
  2. NITROGLYCERIN. [Suspect]
     Active Substance: NITROGLYCERIN

REACTIONS (2)
  - Headache [Recovered/Resolved]
  - Palpitations [Recovered/Resolved]
